FAERS Safety Report 23511763 (Version 1)
Quarter: 2024Q1

REPORT INFORMATION
  Report Type: Spontaneous
  Country: CA (occurrence: CA)
  Receive Date: 20240212
  Receipt Date: 20240212
  Transmission Date: 20240410
  Serious: Yes (Other)
  Sender: FDA-Public Use
  Company Number: CA-FreseniusKabi-FK202402032

PATIENT
  Age: 37 Year
  Sex: Female
  Weight: 87 kg

DRUGS (5)
  1. DIPHENHYDRAMINE HYDROCHLORIDE [Suspect]
     Active Substance: DIPHENHYDRAMINE HYDROCHLORIDE
     Indication: Premedication
     Dosage: FORM: NOT SPECIFIED?ROUTE: UNKNOWN
  2. ATIVAN [Suspect]
     Active Substance: LORAZEPAM
     Indication: Product used for unknown indication
     Dosage: ROUTE: ORAL?DOSE: 1.25 MG?FORM: NOT SPECIFIED
  3. CIPRO [Suspect]
     Active Substance: CIPROFLOXACIN HYDROCHLORIDE
     Indication: Product used for unknown indication
     Dosage: ROUTE: ORAL?FORM: NOT SPECIFIED
  4. MESALAMINE [Suspect]
     Active Substance: MESALAMINE
     Indication: Product used for unknown indication
     Dosage: TABLET (DELAYED AND EXTENDED RELEASE)?ROUTE: ORAL?DOSE: 3.6 MG
  5. REMICADE [Suspect]
     Active Substance: INFLIXIMAB
     Indication: Colitis ulcerative
     Dosage: ROUTE: INTRAVENOUS?FORM: POWDER FOR SOLUTION INTRAVENOUS

REACTIONS (9)
  - Nausea [Unknown]
  - Anxiety [Unknown]
  - Dizziness [Unknown]
  - Exposure during pregnancy [Unknown]
  - Flushing [Unknown]
  - Infusion related reaction [Unknown]
  - Panic attack [Unknown]
  - Presyncope [Unknown]
  - Tachycardia [Unknown]
